FAERS Safety Report 5071094-8 (Version None)
Quarter: 2006Q3

REPORT INFORMATION
  Report Type: 
  Country: None (occurrence: None)
  Receive Date: 20060804
  Receipt Date: 20060206
  Transmission Date: 20061208
  Serious: No
  Sender: FDA-Public Use
  Company Number: US-GLAXOSMITHKLINE-A0592398A

PATIENT
  Age: 30 Year

DRUGS (1)
  1. NICORETTE [Suspect]

REACTIONS (4)
  - DIARRHOEA [None]
  - INTENTIONAL DRUG MISUSE [None]
  - MALAISE [None]
  - VOMITING [None]
